FAERS Safety Report 14573576 (Version 1)
Quarter: 2018Q1

REPORT INFORMATION
  Report Type: Spontaneous
  Country: US (occurrence: US)
  Receive Date: 20180226
  Receipt Date: 20180226
  Transmission Date: 20180509
  Serious: No
  Sender: FDA-Public Use
  Company Number: US-ALLERGAN-1758935US

PATIENT
  Sex: Female

DRUGS (4)
  1. FLUOROMETHOLONE, 0.1% [Suspect]
     Active Substance: FLUOROMETHOLONE
     Dosage: UNK
     Route: 047
     Dates: start: 20171012
  2. FLUOROMETHOLONE, 0.1% [Suspect]
     Active Substance: FLUOROMETHOLONE
     Dosage: 2 GTT, BID
     Route: 047
  3. FLUOROMETHOLONE, 0.1% [Suspect]
     Active Substance: FLUOROMETHOLONE
     Dosage: UNK
  4. FLUOROMETHOLONE, 0.1% [Suspect]
     Active Substance: FLUOROMETHOLONE
     Indication: CONJUNCTIVITIS ALLERGIC
     Dosage: 2 GTT, QID
     Route: 047
     Dates: start: 201708

REACTIONS (3)
  - Drug ineffective [Unknown]
  - Glassy eyes [Recovered/Resolved]
  - Eye discharge [Unknown]
